FAERS Safety Report 23793487 (Version 3)
Quarter: 2024Q3

REPORT INFORMATION
  Report Type: Spontaneous
  Country: TR (occurrence: TR)
  Receive Date: 20240429
  Receipt Date: 20240717
  Transmission Date: 20241017
  Serious: Yes (Other)
  Sender: AMGEN
  Company Number: TR-PFIZER INC-202400091614

PATIENT
  Age: 16 Year
  Sex: Female

DRUGS (1)
  1. ETANERCEPT [Suspect]
     Active Substance: ETANERCEPT
     Indication: Osteomyelitis
     Dosage: 35 MG, WEEKLY
     Route: 065

REACTIONS (2)
  - Lupus-like syndrome [Unknown]
  - Off label use [Unknown]
